FAERS Safety Report 4436901-8 (Version None)
Quarter: 2004Q3

REPORT INFORMATION
  Report Type: 
  Country: None (occurrence: None)
  Receive Date: 20040823
  Receipt Date: 20040807
  Transmission Date: 20050211
  Serious: Yes (Other)
  Sender: FDA-Public Use
  Company Number: 200410298BBE

PATIENT

DRUGS (1)
  1. GAMUNEX [Suspect]
     Indication: RENAL TRANSPLANT
     Dosage: INTRAVENOUS
     Route: 042

REACTIONS (1)
  - ILIAC VEIN THROMBOSIS [None]
